FAERS Safety Report 6732052-8 (Version None)
Quarter: 2010Q2

REPORT INFORMATION
  Report Type: 
  Country: None (occurrence: None)
  Receive Date: 20100519
  Receipt Date: 20100507
  Transmission Date: 20101027
  Serious: Yes (Hospitalization)
  Sender: FDA-Public Use
  Company Number: US-JNJCH-2010011155

PATIENT
  Age: 68 Year
  Sex: Male
  Weight: 91.3 kg

DRUGS (2)
  1. BENADRYL [Suspect]
     Indication: PREMEDICATION
     Dosage: TEXT:UNKNOWN
     Route: 042
  2. CHEMOTHERAPY NOS [Suspect]
     Indication: NEOPLASM PROGRESSION
     Dosage: TEXT:UNKNOWN
     Route: 065

REACTIONS (2)
  - CONFUSIONAL STATE [None]
  - FATIGUE [None]
